FAERS Safety Report 10299842 (Version 1)
Quarter: 2014Q3

REPORT INFORMATION
  Report Type: Spontaneous
  Country: US (occurrence: US)
  Receive Date: 20140711
  Receipt Date: 20140711
  Transmission Date: 20150326
  Serious: No
  Sender: FDA-Public Use
  Company Number: US-PFIZER INC-2014193506

PATIENT
  Age: 65 Year
  Sex: Female
  Weight: 86.17 kg

DRUGS (7)
  1. ZETIA [Concomitant]
     Active Substance: EZETIMIBE
     Dosage: UNK
  2. INSULIN [Concomitant]
     Active Substance: INSULIN NOS
     Indication: DIABETES MELLITUS
     Dosage: UNK
  3. METFORMIN [Concomitant]
     Active Substance: METFORMIN HYDROCHLORIDE
     Dosage: UNK
  4. CHANTIX [Suspect]
     Active Substance: VARENICLINE TARTRATE
     Indication: SMOKING CESSATION THERAPY
     Dosage: 0.5 MG, 1X/DAY
     Dates: start: 20140706, end: 20140708
  5. PRAVASTATIN [Concomitant]
     Active Substance: PRAVASTATIN\PRAVASTATIN SODIUM
     Dosage: UNK
  6. DIOVAN [Concomitant]
     Active Substance: VALSARTAN
     Dosage: UNK
  7. LOVAZA [Concomitant]
     Active Substance: OMEGA-3-ACID ETHYL ESTERS
     Dosage: UNK

REACTIONS (3)
  - Vertigo [Unknown]
  - Dizziness [Unknown]
  - Dysstasia [Unknown]

NARRATIVE: CASE EVENT DATE: 20140708
